FAERS Safety Report 6015098-7 (Version None)
Quarter: 2008Q4

REPORT INFORMATION
  Report Type: 
  Country: None (occurrence: None)
  Receive Date: 20081222
  Receipt Date: 20081216
  Transmission Date: 20090506
  Serious: Yes (Other)
  Sender: FDA-Public Use
  Company Number: AU-BRISTOL-MYERS SQUIBB COMPANY-14446025

PATIENT
  Age: 77 Year
  Sex: Male
  Weight: 60 kg

DRUGS (1)
  1. PRAVASTATIN SODIUM [Suspect]
     Dosage: FORMULATION: TABLET
     Route: 048

REACTIONS (1)
  - PULMONARY FIBROSIS [None]
